FAERS Safety Report 7716633-0 (Version None)
Quarter: 2011Q3

REPORT INFORMATION
  Report Type: 
  Country: None (occurrence: None)
  Receive Date: 20110829
  Receipt Date: 20110823
  Transmission Date: 20111222
  Serious: Yes (Hospitalization, Other)
  Sender: FDA-Public Use
  Company Number: JP-ABBOTT-11P-087-0848672-00

PATIENT
  Sex: Female
  Weight: 65 kg

DRUGS (17)
  1. HYDROCORTISONE/FRADIOMYCIN SULFATE/DIBUCAINE HYDROCHLORIDE/ESCULOSIDE [Concomitant]
     Indication: CROHN'S DISEASE
     Route: 061
  2. PAROXETINE HYDROCHLORIDE [Concomitant]
     Indication: PRODUCT USED FOR UNKNOWN INDICATION
     Route: 048
  3. HUMIRA [Suspect]
     Dates: start: 20110215
  4. TULOBUTEROL [Concomitant]
     Indication: PRODUCT USED FOR UNKNOWN INDICATION
     Route: 062
     Dates: end: 20110214
  5. PARAPHLEBON/SENNAE/SULFUR/POTASSIUM BITARTRATE [Concomitant]
     Indication: CROHN'S DISEASE
     Route: 048
  6. HOCHUEKKITO [Concomitant]
     Indication: CROHN'S DISEASE
     Route: 048
  7. KETOPROFEN [Concomitant]
     Indication: PRODUCT USED FOR UNKNOWN INDICATION
     Route: 061
  8. LOXOPROFEN SODIUM HYDRATE [Concomitant]
     Indication: CROHN'S DISEASE
     Route: 048
  9. HUMIRA [Suspect]
     Indication: CROHN'S DISEASE
     Route: 058
     Dates: start: 20110118, end: 20110118
  10. SULFASALAZINE [Concomitant]
     Indication: CROHN'S DISEASE
     Route: 048
  11. FLURBIPROFEN [Concomitant]
     Indication: PRODUCT USED FOR UNKNOWN INDICATION
     Route: 061
     Dates: start: 20110329
  12. KETOPROFEN [Concomitant]
     Route: 061
  13. LACTOMIN [Concomitant]
     Indication: CROHN'S DISEASE
     Route: 048
  14. TEPRENONE [Concomitant]
     Indication: CROHN'S DISEASE
     Route: 048
  15. BETAHISTINE MESILATE [Concomitant]
     Indication: PRODUCT USED FOR UNKNOWN INDICATION
     Route: 048
  16. HUMIRA [Suspect]
     Dates: start: 20110201, end: 20110201
  17. ADENINE [Concomitant]
     Indication: PRODUCT USED FOR UNKNOWN INDICATION
     Route: 048

REACTIONS (10)
  - ERYTHEMA [None]
  - HEADACHE [None]
  - ABDOMINAL PAIN [None]
  - HYPERSENSITIVITY [None]
  - PERIPHERAL COLDNESS [None]
  - CHILLS [None]
  - ILEUS [None]
  - PYREXIA [None]
  - CROHN'S DISEASE [None]
  - PRURITUS [None]
